FAERS Safety Report 20840480 (Version 1)
Quarter: 2022Q2

REPORT INFORMATION
  Report Type: Spontaneous
  Country: US (occurrence: US)
  Receive Date: 20220517
  Receipt Date: 20220517
  Transmission Date: 20220721
  Serious: No
  Sender: FDA-Public Use
  Company Number: US-VERTEX PHARMACEUTICALS-2021-012471

PATIENT
  Sex: Male

DRUGS (2)
  1. TRIKAFTA [Suspect]
     Active Substance: ELEXACAFTOR\IVACAFTOR\TEZACAFTOR
     Indication: Cystic fibrosis
     Dosage: UNK
     Route: 048
     Dates: start: 20210628, end: 202109
  2. TRIKAFTA [Suspect]
     Active Substance: ELEXACAFTOR\IVACAFTOR\TEZACAFTOR
     Dosage: ONE TABLET AM, QD
     Route: 048
     Dates: start: 20220328, end: 20220505

REACTIONS (8)
  - Formication [Recovered/Resolved]
  - Muscular weakness [Recovered/Resolved]
  - Blepharospasm [Recovered/Resolved]
  - Feeling abnormal [Recovered/Resolved]
  - Vomiting [Unknown]
  - Tourette^s disorder [Not Recovered/Not Resolved]
  - Pruritus [Recovered/Resolved]
  - Dizziness [Recovered/Resolved]

NARRATIVE: CASE EVENT DATE: 20210101
